FAERS Safety Report 24119728 (Version 1)
Quarter: 2024Q3

REPORT INFORMATION
  Report Type: Spontaneous
  Country: SA (occurrence: SA)
  Receive Date: 20240722
  Receipt Date: 20240722
  Transmission Date: 20241017
  Serious: Yes (Death, Other)
  Sender: ARGENX BVBA
  Company Number: SA-ARGENX-2024-ARGX-SA005708

PATIENT

DRUGS (1)
  1. VYVGART [Suspect]
     Active Substance: EFGARTIGIMOD ALFA-FCAB
     Indication: Myasthenia gravis
     Dosage: UNK,EACH CYCLE: ONCE WEEKLY FOR 4 WEEK
     Route: 042
     Dates: start: 20230301, end: 20240505

REACTIONS (1)
  - Death [Fatal]
